FAERS Safety Report 9205376 (Version 1)
Quarter: 2013Q2

REPORT INFORMATION
  Report Type: Report from Study
  Country: US (occurrence: US)
  Receive Date: 20130402
  Receipt Date: 20130402
  Transmission Date: 20140414
  Serious: No
  Sender: FDA-Public Use
  Company Number: US-009507513-1303USA010268

PATIENT
  Age: 61 Year
  Sex: Female

DRUGS (11)
  1. ASMANEX TWISTHALER [Suspect]
     Indication: ASTHMA
     Dosage: 1 DF, BID
     Route: 055
     Dates: start: 20130312
  2. ASMANEX TWISTHALER [Suspect]
     Indication: HYPERSENSITIVITY
  3. ALBUTEROL [Concomitant]
  4. MUCINEX [Concomitant]
  5. CHLORPHENIRAMINE MALEATE [Concomitant]
  6. LIPITOR [Concomitant]
  7. GABAPENTIN [Concomitant]
  8. VITAMINS (UNSPECIFIED) [Concomitant]
  9. OMEGA-3 MARINE TRIGLYCERIDES [Concomitant]
  10. VITAMIN D (UNSPECIFIED) [Concomitant]
  11. UBIDECARENONE [Concomitant]

REACTIONS (4)
  - Dyspnoea [Not Recovered/Not Resolved]
  - Hypersensitivity [Not Recovered/Not Resolved]
  - Device malfunction [Unknown]
  - Drug dose omission [Unknown]
